FAERS Safety Report 14236491 (Version 2)
Quarter: 2017Q4

REPORT INFORMATION
  Report Type: Spontaneous
  Country: IN (occurrence: IN)
  Receive Date: 20171129
  Receipt Date: 20171214
  Transmission Date: 20180321
  Serious: Yes (Other)
  Sender: FDA-Public Use
  Company Number: PHHY2017IN171855

PATIENT
  Age: 4 Year
  Sex: Female
  Weight: 24 kg

DRUGS (2)
  1. OFLOXACIN. [Suspect]
     Active Substance: OFLOXACIN
     Indication: GASTROENTERITIS
     Dosage: 0.25 DF (400 MG, 1/4 TABLET TWICE DAILY (200 MG/DAY))
     Route: 048
  2. OFLOXACIN. [Suspect]
     Active Substance: OFLOXACIN
     Dosage: 1 DF, QD (800 MG DAILY)
     Route: 048

REACTIONS (5)
  - Incorrect dose administered [Unknown]
  - Drug prescribing error [Unknown]
  - Delirium [Recovered/Resolved]
  - Hallucination [Recovered/Resolved]
  - Toxicity to various agents [Recovered/Resolved]
